FAERS Safety Report 5119106-7 (Version None)
Quarter: 2006Q3

REPORT INFORMATION
  Report Type: 
  Country: None (occurrence: None)
  Receive Date: 20060925
  Receipt Date: 20060914
  Transmission Date: 20061208
  Serious: Yes (Other)
  Sender: FDA-Public Use
  Company Number: HQWYE936520SEP06

PATIENT
  Age: 56 Year
  Sex: Male

DRUGS (3)
  1. ADVIL [Suspect]
     Indication: INFLAMMATION
     Dosage: AS NEEDED ORAL
     Route: 048
  2. UNSPECIFIED ANTIHYPERTENSIVE AGENT (UNSPECIFIED ANTIHYPERTENSIVE AGENT [Concomitant]
  3. UNSPECIFIED ANTIHYPERLIPIDEMIC (UNSPECIFIED ANTIHYPERLIPIDEMIC) [Concomitant]

REACTIONS (3)
  - LOCAL SWELLING [None]
  - SWELLING FACE [None]
  - SWOLLEN TONGUE [None]
